FAERS Safety Report 9030532 (Version 1)
Quarter: 2013Q1

REPORT INFORMATION
  Report Type: Spontaneous
  Country: US (occurrence: US)
  Receive Date: 20130122
  Receipt Date: 20130122
  Transmission Date: 20140127
  Serious: Yes (Other)
  Sender: FDA-Public Use
  Company Number: US-PFIZER INC-2013025352

PATIENT
  Age: 50 Year
  Sex: Female
  Weight: 58.96 kg

DRUGS (1)
  1. PRISTIQ [Suspect]
     Indication: MENOPAUSAL SYMPTOMS
     Dosage: 50 MG, DAILY
     Route: 048

REACTIONS (5)
  - Suicidal ideation [Unknown]
  - Withdrawal syndrome [Unknown]
  - Emotional disorder [Unknown]
  - Anger [Unknown]
  - Sensory disturbance [Unknown]
